FAERS Safety Report 22177125 (Version 8)
Quarter: 2025Q3

REPORT INFORMATION
  Report Type: Report from Study
  Country: US (occurrence: US)
  Receive Date: 20230405
  Receipt Date: 20250801
  Transmission Date: 20251021
  Serious: Yes (Other)
  Sender: TAKEDA
  Company Number: US-TAKEDA-2020TUS061228

PATIENT
  Age: 47 Year
  Sex: Female

DRUGS (2)
  1. HUMAN IMMUNOGLOBULIN G [Suspect]
     Active Substance: HUMAN IMMUNOGLOBULIN G
     Indication: Hypogammaglobulinaemia
  2. HUMAN IMMUNOGLOBULIN G [Suspect]
     Active Substance: HUMAN IMMUNOGLOBULIN G
     Indication: Primary immunodeficiency syndrome

REACTIONS (25)
  - Diabetes mellitus [Unknown]
  - Neuropathy peripheral [Unknown]
  - Skin mass [Unknown]
  - Migraine [Not Recovered/Not Resolved]
  - Fatigue [Unknown]
  - Headache [Unknown]
  - Diarrhoea [Unknown]
  - Nausea [Unknown]
  - Alopecia [Unknown]
  - Speech disorder [Unknown]
  - COVID-19 [Unknown]
  - Immunoglobulins decreased [Unknown]
  - Cyst [Unknown]
  - Blood triglycerides abnormal [Unknown]
  - Abscess [Unknown]
  - Breast cyst rupture [Unknown]
  - Viral infection [Unknown]
  - Urinary tract infection [Unknown]
  - Psoriasis [Unknown]
  - Fall [Unknown]
  - Renal function test abnormal [Unknown]
  - Weight decreased [Unknown]
  - Weight increased [Unknown]
  - Glycosylated haemoglobin increased [Unknown]
  - Rash [Unknown]

NARRATIVE: CASE EVENT DATE: 20250113
